FAERS Safety Report 17085159 (Version 2)
Quarter: 2019Q4

REPORT INFORMATION
  Report Type: Report from Study
  Country: US (occurrence: US)
  Receive Date: 20191127
  Receipt Date: 20191217
  Transmission Date: 20200122
  Serious: Yes (Death)
  Sender: FDA-Public Use
  Company Number: US-EXELIXIS-CABO-19025179

PATIENT
  Sex: Male

DRUGS (1)
  1. CABOMETYX [Suspect]
     Active Substance: CABOZANTINIB S-MALATE
     Indication: MALIGNANT RESPIRATORY TRACT NEOPLASM
     Dosage: 60 MG, QD (5 AM WITHOUT FOOD)
     Dates: start: 20191011

REACTIONS (6)
  - Pneumonia [Fatal]
  - Cardiac arrest [Fatal]
  - Blood pressure increased [Not Recovered/Not Resolved]
  - Malignant neoplasm progression [Fatal]
  - Septic shock [Fatal]
  - Off label use [Unknown]
